FAERS Safety Report 4282690-X (Version None)
Quarter: 2004Q1

REPORT INFORMATION
  Report Type: 
  Country: None (occurrence: None)
  Receive Date: 20040130
  Receipt Date: 20030225
  Transmission Date: 20041129
  Serious: Yes (Hospitalization)
  Sender: FDA-Public Use
  Company Number: US-BRISTOL-MYERS SQUIBB COMPANY-12195194

PATIENT
  Age: 11 Year
  Sex: Male

DRUGS (6)
  1. SERZONE [Suspect]
     Indication: ACCIDENTAL EXPOSURE
     Dosage: TAKING FOR  ^AT LEAST 12 DAYS^; 2 TABS AT BEDTIME.
     Route: 048
  2. RITALIN [Concomitant]
  3. CELEXA [Concomitant]
  4. MELLARIL [Concomitant]
  5. TRILEPTAL [Concomitant]
  6. DDAVP [Concomitant]

REACTIONS (3)
  - AGITATION [None]
  - COMPLEX PARTIAL SEIZURES [None]
  - MEDICATION ERROR [None]
